FAERS Safety Report 9782666 (Version 1)
Quarter: 2013Q4

REPORT INFORMATION
  Report Type: Spontaneous
  Country: US (occurrence: US)
  Receive Date: 20131226
  Receipt Date: 20131226
  Transmission Date: 20140711
  Serious: No
  Sender: FDA-Public Use
  Company Number: US-B.I. PHARMACEUTICALS,INC./RIDGEFIELD-2013-BI-42242BP

PATIENT
  Sex: Female
  Weight: 98 kg

DRUGS (2)
  1. MICARDIS [Suspect]
     Indication: HYPERTENSION
     Dosage: 40 MG
     Route: 048
     Dates: start: 2005, end: 2011
  2. MICARDIS [Suspect]
     Dosage: 80 MG
     Route: 048
     Dates: start: 2011

REACTIONS (1)
  - Drug ineffective [Recovered/Resolved]
